FAERS Safety Report 15599036 (Version 1)
Quarter: 2018Q4

REPORT INFORMATION
  Report Type: Spontaneous
  Country: US (occurrence: US)
  Receive Date: 20181108
  Receipt Date: 20181108
  Transmission Date: 20190205
  Serious: Yes (Other)
  Sender: FDA-Public Use
  Company Number: US-MYLANLABS-2018M1082468

PATIENT
  Age: 74 Year
  Sex: Male

DRUGS (5)
  1. TADALAFIL. [Suspect]
     Active Substance: TADALAFIL
     Indication: BENIGN PROSTATIC HYPERPLASIA
     Dosage: 5 MG/KG, QD
     Route: 065
  2. OXYCODONE [Concomitant]
     Active Substance: OXYCODONE
     Indication: PROCEDURAL PAIN
     Route: 048
  3. GINGKO BILOBA [Interacting]
     Active Substance: GINKGO
     Indication: NUTRITIONAL SUPPLEMENTATION
     Dosage: EXTRACT; RE-STARTED 1 DAY AFTER OPERATION
     Route: 065
  4. ACETAMINOPHEN. [Concomitant]
     Active Substance: ACETAMINOPHEN
     Indication: PROCEDURAL PAIN
     Dosage: INITIAL DOSE NOT STATED
     Route: 065
  5. ACETAMINOPHEN. [Concomitant]
     Active Substance: ACETAMINOPHEN
     Dosage: 500 MG, 4 TIMES A DAY AS NEEDED
     Route: 065

REACTIONS (3)
  - Drug interaction [Recovered/Resolved]
  - Genital haemorrhage [Recovered/Resolved]
  - Penile haematoma [Recovered/Resolved]
